FAERS Safety Report 24609208 (Version 1)
Quarter: 2024Q4

REPORT INFORMATION
  Report Type: Spontaneous
  Country: DE (occurrence: DE)
  Receive Date: 20241112
  Receipt Date: 20241112
  Transmission Date: 20250115
  Serious: Yes (Hospitalization)
  Sender: AUROBINDO
  Company Number: DE-MLMSERVICE-20240530-PI083045-00133-1

PATIENT
  Age: 32 Year
  Sex: Female

DRUGS (4)
  1. EPIRUBICIN [Suspect]
     Active Substance: EPIRUBICIN
     Indication: Breast cancer female
     Dosage: UNK, CYCLICAL (FOUR CYCLES)
     Route: 065
  2. CARBOPLATIN [Suspect]
     Active Substance: CARBOPLATIN
     Indication: Breast cancer female
     Dosage: UNK UNK, CYCLICAL ((AUC5). WEEKLY (12X))
     Route: 065
  3. CYCLOPHOSPHAMIDE [Suspect]
     Active Substance: CYCLOPHOSPHAMIDE
     Indication: Breast cancer female
     Dosage: UNK , CYCLICAL (FOUR CYCLES)
     Route: 065
  4. TAXOL [Suspect]
     Active Substance: PACLITAXEL
     Indication: Breast cancer female
     Dosage: UNK, EVERY WEEK (WEEKLY (12X)
     Route: 065

REACTIONS (2)
  - Ovarian failure [Recovered/Resolved]
  - Premature menopause [Recovered/Resolved]
